FAERS Safety Report 25624375 (Version 1)
Quarter: 2025Q3

REPORT INFORMATION
  Report Type: Spontaneous
  Country: CO (occurrence: CO)
  Receive Date: 20250730
  Receipt Date: 20250730
  Transmission Date: 20251020
  Serious: Yes (Hospitalization)
  Sender: NOVO NORDISK
  Company Number: CO-NOVOPROD-1167157

PATIENT
  Age: 76 Year
  Sex: Female
  Weight: 74 kg

DRUGS (1)
  1. TRESIBA [Suspect]
     Active Substance: INSULIN DEGLUDEC
     Indication: Type 2 diabetes mellitus
     Dosage: 30 IU, QD
     Route: 058

REACTIONS (3)
  - Renal disorder [Unknown]
  - Blood pressure abnormal [Unknown]
  - Blood glucose abnormal [Unknown]
